FAERS Safety Report 12709343 (Version 2)
Quarter: 2016Q3

REPORT INFORMATION
  Report Type: Report from Study
  Country: US (occurrence: US)
  Receive Date: 20160901
  Receipt Date: 20160919
  Transmission Date: 20161109
  Serious: Yes (Other)
  Sender: FDA-Public Use
  Company Number: PHEH2016US022045

PATIENT
  Age: 70 Year
  Sex: Male

DRUGS (1)
  1. GILENYA [Suspect]
     Active Substance: FINGOLIMOD HYDROCHLORIDE
     Indication: MULTIPLE SCLEROSIS
     Dosage: UNK UNK, QD
     Route: 048
     Dates: start: 20160509, end: 20160816

REACTIONS (2)
  - Macular oedema [Unknown]
  - Vision blurred [Unknown]

NARRATIVE: CASE EVENT DATE: 20160816
